FAERS Safety Report 12755871 (Version 1)
Quarter: 2016Q3

REPORT INFORMATION
  Report Type: Spontaneous
  Country: CH (occurrence: CH)
  Receive Date: 20160916
  Receipt Date: 20160916
  Transmission Date: 20161109
  Serious: Yes (Hospitalization)
  Sender: FDA-Public Use
  Company Number: CH-ASTRAZENECA-2016SE96057

PATIENT
  Age: 784 Month
  Sex: Male

DRUGS (7)
  1. DEROXAT [Interacting]
     Active Substance: PAROXETINE HYDROCHLORIDE
     Indication: DEPRESSION
     Route: 048
     Dates: start: 20160314, end: 20160326
  2. TRAZODONE [Interacting]
     Active Substance: TRAZODONE HYDROCHLORIDE
     Route: 048
     Dates: start: 201603, end: 20160326
  3. SEROQUEL [Suspect]
     Active Substance: QUETIAPINE FUMARATE
     Route: 048
     Dates: start: 20160215, end: 20160326
  4. HALDOL [Concomitant]
     Active Substance: HALOPERIDOL
     Route: 048
     Dates: start: 201602, end: 20160314
  5. ENTUMIN [Concomitant]
     Active Substance: CLOTHIAPINE
     Route: 048
     Dates: start: 201602, end: 20160326
  6. IMOVANE [Concomitant]
     Active Substance: ZOPICLONE
     Route: 048
     Dates: start: 201602, end: 20160326
  7. DEROXAT [Interacting]
     Active Substance: PAROXETINE HYDROCHLORIDE
     Indication: DEPRESSION
     Route: 048
     Dates: start: 20160119

REACTIONS (15)
  - Merycism [Unknown]
  - Hypertonia [Recovered/Resolved]
  - Opisthotonus [Unknown]
  - Serotonin syndrome [Recovered/Resolved]
  - Mental impairment [Unknown]
  - Tremor [Recovered/Resolved]
  - Drug interaction [Unknown]
  - Disorientation [Unknown]
  - Hyperhidrosis [Recovered/Resolved]
  - Psychomotor retardation [Unknown]
  - Blood creatine phosphokinase increased [Unknown]
  - Tachycardia [Recovered/Resolved]
  - Restless legs syndrome [Unknown]
  - Hyperreflexia [Recovered/Resolved]
  - Tachypnoea [Unknown]

NARRATIVE: CASE EVENT DATE: 201603
